FAERS Safety Report 24937168 (Version 1)
Quarter: 2025Q1

REPORT INFORMATION
  Report Type: Spontaneous
  Country: US (occurrence: US)
  Receive Date: 20250206
  Receipt Date: 20250206
  Transmission Date: 20250409
  Serious: No
  Sender: BAYER HEALTHCARE LLC
  Company Number: US-BAYER-2025A016411

PATIENT

DRUGS (5)
  1. CLARITIN ALLERGY [Suspect]
     Active Substance: LORATADINE
     Indication: Hypersensitivity
     Route: 048
  2. CLARITIN ALLERGY [Suspect]
     Active Substance: LORATADINE
     Indication: Nasopharyngitis
  3. CLARITIN ALLERGY [Suspect]
     Active Substance: LORATADINE
     Indication: Rhinorrhoea
  4. CLARITIN ALLERGY [Suspect]
     Active Substance: LORATADINE
     Indication: Lacrimation increased
  5. CLARITIN ALLERGY [Suspect]
     Active Substance: LORATADINE
     Indication: Eye pruritus

REACTIONS (1)
  - Drug ineffective [Unknown]
